FAERS Safety Report 20518657 (Version 1)
Quarter: 2022Q1

REPORT INFORMATION
  Report Type: Other
  Country: CN (occurrence: None)
  Receive Date: 20220225
  Receipt Date: 20220225
  Transmission Date: 20220423
  Serious: Yes (Other)
  Sender: FDA-Public Use
  Company Number: CN-ROCHE-3027491

PATIENT
  Age: 66 Year
  Sex: Male

DRUGS (12)
  1. VEMURAFENIB [Suspect]
     Active Substance: VEMURAFENIB
     Indication: Ductal adenocarcinoma of pancreas
     Route: 065
     Dates: start: 20191022, end: 20200122
  2. VEMURAFENIB [Suspect]
     Active Substance: VEMURAFENIB
     Route: 065
     Dates: start: 20200130, end: 20200430
  3. VEMURAFENIB [Suspect]
     Active Substance: VEMURAFENIB
     Route: 065
     Dates: start: 20200515, end: 20200817
  4. VEMURAFENIB [Suspect]
     Active Substance: VEMURAFENIB
     Route: 065
     Dates: start: 20200911, end: 20201212
  5. VEMURAFENIB [Suspect]
     Active Substance: VEMURAFENIB
     Route: 065
     Dates: start: 20210109, end: 20210313
  6. VEMURAFENIB [Suspect]
     Active Substance: VEMURAFENIB
     Route: 065
     Dates: start: 20210522, end: 20210625
  7. TRAMETINIB [Suspect]
     Active Substance: TRAMETINIB
     Indication: Ductal adenocarcinoma of pancreas
     Route: 065
     Dates: start: 20191022, end: 20200122
  8. TRAMETINIB [Suspect]
     Active Substance: TRAMETINIB
     Route: 065
     Dates: start: 20200130, end: 20200430
  9. TRAMETINIB [Suspect]
     Active Substance: TRAMETINIB
     Route: 065
     Dates: start: 20200515, end: 20200817
  10. TRAMETINIB [Suspect]
     Active Substance: TRAMETINIB
     Route: 065
     Dates: start: 20200911, end: 20201212
  11. TRAMETINIB [Suspect]
     Active Substance: TRAMETINIB
     Route: 065
     Dates: start: 20210109, end: 20210313
  12. TRAMETINIB [Suspect]
     Active Substance: TRAMETINIB
     Route: 065
     Dates: start: 20210522, end: 20210625

REACTIONS (8)
  - Intestinal obstruction [Recovered/Resolved]
  - Rash [Recovered/Resolved]
  - Pruritus [Recovered/Resolved]
  - Mouth ulceration [Recovered/Resolved]
  - Constipation [Recovered/Resolved]
  - Pyrexia [Recovered/Resolved]
  - Disease progression [Unknown]
  - Drug ineffective [Unknown]
